FAERS Safety Report 8123488-1 (Version None)
Quarter: 2012Q1

REPORT INFORMATION
  Report Type: 
  Country: None (occurrence: None)
  Receive Date: 20120208
  Receipt Date: 20120201
  Transmission Date: 20120608
  Serious: Yes (Hospitalization, Other)
  Sender: FDA-Public Use
  Company Number: PHHY2010BR84701

PATIENT
  Sex: Female

DRUGS (2)
  1. EXELON [Suspect]
     Dosage: 1.5 MG, UNK
     Route: 048
  2. EXELON [Suspect]
     Dosage: 3 MG, ONCE/SINGLE
     Route: 048
     Dates: start: 20101122, end: 20101122

REACTIONS (5)
  - BLOOD SODIUM DECREASED [None]
  - DIZZINESS [None]
  - VOMITING [None]
  - BRONCHITIS [None]
  - BLOOD PRESSURE INCREASED [None]
